FAERS Safety Report 14142061 (Version 20)
Quarter: 2019Q1

REPORT INFORMATION
  Report Type: Spontaneous
  Country: CA (occurrence: CA)
  Receive Date: 20171030
  Receipt Date: 20190329
  Transmission Date: 20190417
  Serious: Yes (Hospitalization, Disabling, Other)
  Sender: FDA-Public Use
  Company Number: CA-CELLTRION INC.-2017CA013797

PATIENT

DRUGS (24)
  1. INFLECTRA [Suspect]
     Active Substance: INFLIXIMAB-DYYB
     Dosage: 500MG, EVERY 6 WEEKS
     Route: 042
  2. HYDROCORTISONE. [Concomitant]
     Active Substance: HYDROCORTISONE
     Dosage: UNK
     Dates: start: 20181231, end: 20181231
  3. INFLECTRA [Suspect]
     Active Substance: INFLIXIMAB-DYYB
     Dosage: 500 MG EVERY 6 WEEKS
     Route: 042
     Dates: start: 20180117
  4. INFLECTRA [Suspect]
     Active Substance: INFLIXIMAB-DYYB
     Dosage: 10 MG/KG, EVERY 6 WEEKS
     Route: 042
     Dates: start: 20180228
  5. INFLECTRA [Suspect]
     Active Substance: INFLIXIMAB-DYYB
     Dosage: 500MG, EVERY 6 WEEKS
     Route: 042
     Dates: start: 20190314
  6. INFLECTRA [Suspect]
     Active Substance: INFLIXIMAB-DYYB
     Dosage: 5 MG/KG, (EVERY 6 WEEKS)
     Route: 042
  7. INFLECTRA [Suspect]
     Active Substance: INFLIXIMAB-DYYB
     Dosage: 500MG, EVERY 6 WEEKS
     Route: 042
     Dates: start: 20180523
  8. INFLECTRA [Suspect]
     Active Substance: INFLIXIMAB-DYYB
     Dosage: 500MG, EVERY 6 WEEKS
     Route: 042
     Dates: start: 20180704
  9. PREDNISONE. [Concomitant]
     Active Substance: PREDNISONE
     Dosage: 30 MG, DAILY
     Route: 048
     Dates: start: 20170713
  10. RANITIDINE. [Concomitant]
     Active Substance: RANITIDINE
     Dosage: 150 MG, BID
     Route: 048
  11. INFLECTRA [Suspect]
     Active Substance: INFLIXIMAB-DYYB
     Dosage: 300 MG, EVERY 6 WEEKS
     Route: 042
     Dates: start: 20171206, end: 20171206
  12. INFLECTRA [Suspect]
     Active Substance: INFLIXIMAB-DYYB
     Dosage: 500MG, EVERY 6 WEEKS
     Route: 042
     Dates: start: 20180814
  13. INFLECTRA [Suspect]
     Active Substance: INFLIXIMAB-DYYB
     Dosage: 500MG, EVERY 6 WEEKS
     Route: 042
     Dates: start: 20181231
  14. AZATHIOPRINE. [Concomitant]
     Active Substance: AZATHIOPRINE
     Dosage: 50 MG, BID
     Route: 048
     Dates: start: 20170419, end: 201706
  15. INFLECTRA [Suspect]
     Active Substance: INFLIXIMAB-DYYB
     Dosage: 300 MG, EVERY 6 WEEKS
     Route: 042
     Dates: start: 20171025
  16. INFLECTRA [Suspect]
     Active Substance: INFLIXIMAB-DYYB
     Dosage: 500MG, EVERY 6 WEEKS
     Route: 042
     Dates: start: 20181108
  17. INFLECTRA [Suspect]
     Active Substance: INFLIXIMAB-DYYB
     Dosage: 10 MG/KG, EVERY 6 WEEKS
     Route: 042
     Dates: start: 20180117
  18. INFLECTRA [Suspect]
     Active Substance: INFLIXIMAB-DYYB
     Dosage: 500MG, EVERY 6 WEEKS
     Route: 042
     Dates: start: 20181004
  19. AZATHIOPRINE. [Concomitant]
     Active Substance: AZATHIOPRINE
     Dosage: 50 MG, DAILY
     Route: 048
     Dates: start: 201706
  20. HYDROCORTISONE. [Concomitant]
     Active Substance: HYDROCORTISONE
     Indication: PREMEDICATION
     Dosage: UNK
     Dates: start: 20181108, end: 20181108
  21. INFLECTRA [Suspect]
     Active Substance: INFLIXIMAB-DYYB
     Indication: CROHN^S DISEASE
     Dosage: 300 MG EVERY 6 WEEKS
     Route: 042
     Dates: start: 20170913, end: 20171206
  22. INFLECTRA [Suspect]
     Active Substance: INFLIXIMAB-DYYB
     Dosage: 293 MG, (EVERY 0, 2, 6 WEEKS, THEN EVERY 8 WEEKS)
     Route: 042
     Dates: start: 20170913
  23. INFLECTRA [Suspect]
     Active Substance: INFLIXIMAB-DYYB
     Dosage: 500MG, EVERY 6 WEEKS
     Route: 042
     Dates: start: 20180411
  24. INFLECTRA [Suspect]
     Active Substance: INFLIXIMAB-DYYB
     Dosage: 500MG, EVERY 6 WEEKS
     Route: 042

REACTIONS (29)
  - Chest pain [Unknown]
  - Abdominal pain upper [Recovering/Resolving]
  - Blood pressure increased [Unknown]
  - Feeling of body temperature change [Unknown]
  - Back pain [Not Recovered/Not Resolved]
  - Blood viscosity increased [Unknown]
  - Back injury [Unknown]
  - Vomiting [Not Recovered/Not Resolved]
  - Skin burning sensation [Not Recovered/Not Resolved]
  - Nausea [Unknown]
  - Abdominal distension [Recovering/Resolving]
  - Weight decreased [Not Recovered/Not Resolved]
  - Pulmonary mass [Unknown]
  - Bone cancer [Unknown]
  - Headache [Recovered/Resolved]
  - Fatigue [Unknown]
  - Intestinal obstruction [Unknown]
  - Balance disorder [Unknown]
  - Rash pruritic [Unknown]
  - Off label use [Unknown]
  - Blood pressure fluctuation [Unknown]
  - Lung carcinoma cell type unspecified stage III [Unknown]
  - Dizziness [Unknown]
  - Abdominal discomfort [Recovering/Resolving]
  - Pain [Not Recovered/Not Resolved]
  - Diarrhoea [Recovering/Resolving]
  - Malaise [Unknown]
  - Condition aggravated [Unknown]
  - Pharyngeal mass [Unknown]

NARRATIVE: CASE EVENT DATE: 20170916
